FAERS Safety Report 7328874-5 (Version None)
Quarter: 2011Q1

REPORT INFORMATION
  Report Type: 
  Country: None (occurrence: None)
  Receive Date: 20110303
  Receipt Date: 20110222
  Transmission Date: 20110831
  Serious: Yes (Life-Threatening, Hospitalization, Other)
  Sender: FDA-Public Use
  Company Number: IT-JNJFOC-20060203581

PATIENT
  Age: 50 Year
  Sex: Female

DRUGS (3)
  1. METHOTREXATE [Concomitant]
     Indication: CROHN'S DISEASE
  2. INFLIXIMAB [Suspect]
     Indication: CROHN'S DISEASE
     Dosage: 6 INFUSIONS
     Route: 042
  3. AZATHIOPRINE SODIUM [Concomitant]

REACTIONS (1)
  - BREAST CANCER [None]
